FAERS Safety Report 7377881-5 (Version None)
Quarter: 2011Q1

REPORT INFORMATION
  Report Type: 
  Country: None (occurrence: None)
  Receive Date: 20110328
  Receipt Date: 20110314
  Transmission Date: 20110831
  Serious: Yes (Other)
  Sender: FDA-Public Use
  Company Number: ZA-ROCHE-767492

PATIENT
  Sex: Female

DRUGS (1)
  1. RIVOTRIL [Suspect]
     Route: 065

REACTIONS (1)
  - BLINDNESS [None]
